FAERS Safety Report 8965525 (Version 1)
Quarter: 2012Q4

REPORT INFORMATION
  Report Type: Spontaneous
  Country: US (occurrence: None)
  Receive Date: 20121212
  Receipt Date: 20121212
  Transmission Date: 20130627
  Serious: Yes (Hospitalization, Disabling, Other)
  Sender: FDA-Public Use
  Company Number: None

PATIENT
  Age: 69 Year
  Sex: Male
  Weight: 76.2 kg

DRUGS (2)
  1. LOVASTATIN [Suspect]
     Indication: HIGH CHOLESTEROL
     Route: 048
  2. ADVICOR [Suspect]
     Route: 048

REACTIONS (4)
  - Product substitution issue [None]
  - Blood creatine phosphokinase increased [None]
  - Myalgia [None]
  - Muscle injury [None]
